FAERS Safety Report 16365166 (Version 2)
Quarter: 2019Q3

REPORT INFORMATION
  Report Type: Spontaneous
  Country: JP (occurrence: JP)
  Receive Date: 20190529
  Receipt Date: 20190805
  Transmission Date: 20191004
  Serious: Yes (Hospitalization, Other)
  Sender: FDA-Public Use
  Company Number: JP-009507513-1905JPN002284J

PATIENT
  Age: 70 Year
  Sex: Male
  Weight: 53 kg

DRUGS (16)
  1. ALIMTA [Suspect]
     Active Substance: PEMETREXED DISODIUM
     Dosage: 577 MILLIGRAM, Q3W
     Route: 041
  2. ZOLPIDEM TARTRATE. [Concomitant]
     Active Substance: ZOLPIDEM TARTRATE
     Dosage: 5 MILLIGRAM, QD
     Route: 048
  3. TAKECAB [Concomitant]
     Active Substance: VONOPRAZAN FUMURATE
     Dosage: 20 MILLIGRAM, QD
     Route: 048
     Dates: start: 20190326
  4. CISPLATIN. [Suspect]
     Active Substance: CISPLATIN
     Dosage: 116.4 MILLIGRAM, Q3W
     Route: 041
     Dates: start: 20190513
  5. LOPRESOR [Concomitant]
     Active Substance: METOPROLOL
     Dosage: 20 MILLIGRAM, TID
     Route: 048
  6. ROZEREM [Concomitant]
     Active Substance: RAMELTEON
     Dosage: 8 MILLIGRAM, QD
     Route: 048
  7. ALIMTA [Suspect]
     Active Substance: PEMETREXED DISODIUM
     Dosage: 776 MILLIGRAM, Q3W
     Route: 041
     Dates: start: 20190513, end: 20190513
  8. TEPRENONE [Concomitant]
     Active Substance: TEPRENONE
     Dosage: 50 MILLIGRAM, TID
     Route: 048
  9. ALLOPURINOL. [Concomitant]
     Active Substance: ALLOPURINOL
     Dosage: 100 MILLIGRAM, BID
     Route: 048
  10. CALONAL [Concomitant]
     Active Substance: ACETAMINOPHEN
     Dosage: 500 MILLIGRAM, TID
     Route: 048
     Dates: start: 20190326
  11. NARUSUS [Concomitant]
     Active Substance: HYDROMORPHONE HYDROCHLORIDE
     Dosage: 2 MILLIGRAM, QD
     Route: 048
     Dates: start: 20190226
  12. KEYTRUDA [Suspect]
     Active Substance: PEMBROLIZUMAB
     Indication: NON-SMALL CELL LUNG CANCER
     Dosage: 200 MILLIGRAM, Q3W
     Route: 041
     Dates: start: 20190320, end: 20190417
  13. ALIMTA [Suspect]
     Active Substance: PEMETREXED DISODIUM
     Indication: NON-SMALL CELL LUNG CANCER
     Dosage: 812 MILLIGRAM, Q3W
     Route: 041
     Dates: start: 20190320
  14. CISPLATIN. [Suspect]
     Active Substance: CISPLATIN
     Indication: NON-SMALL CELL LUNG CANCER
     Dosage: 121 MILLIGRAM, Q3W
     Route: 041
     Dates: start: 20190320, end: 20190417
  15. PANVITAN [Concomitant]
     Dosage: 1 GRAM, QD
     Route: 048
     Dates: start: 20190312
  16. ETIZOLAM [Concomitant]
     Active Substance: ETIZOLAM
     Dosage: 0.5 MILLIGRAM, QD
     Route: 048

REACTIONS (3)
  - Colitis [Recovered/Resolved]
  - Glaucoma [Recovered/Resolved]
  - Erythema multiforme [Recovered/Resolved]

NARRATIVE: CASE EVENT DATE: 20190410
